FAERS Safety Report 5244543-X (Version None)
Quarter: 2007Q1

REPORT INFORMATION
  Report Type: 
  Country: None (occurrence: None)
  Receive Date: 20061201
  Receipt Date: 20060822
  Transmission Date: 20070707
  Serious: No
  Sender: FDA-Public Use
  Company Number: 2006PV019950

PATIENT
  Sex: Female

DRUGS (2)
  1. BYETTA [Suspect]
     Indication: DIABETES MELLITUS NON-INSULIN-DEPENDENT
     Dosage: 5 MCG;BID;SC
     Route: 058
     Dates: start: 20060701
  2. BYETTA [Suspect]
     Indication: PROPHYLAXIS
     Dosage: 5 MCG;BID;SC
     Route: 058
     Dates: start: 20060701

REACTIONS (1)
  - BLOOD GLUCOSE INCREASED [None]
